FAERS Safety Report 6334122-5 (Version None)
Quarter: 2009Q3

REPORT INFORMATION
  Report Type: 
  Country: None (occurrence: None)
  Receive Date: 20090829
  Receipt Date: 20090722
  Transmission Date: 20100115
  Serious: No
  Sender: FDA-Public Use
  Company Number: US-ABBOTT-09P-163-0587290-00

PATIENT
  Sex: Female
  Weight: 72.64 kg

DRUGS (8)
  1. SIMCOR [Suspect]
     Indication: BLOOD CHOLESTEROL INCREASED
     Dosage: 500/20MG DAILY
     Dates: start: 20090101
  2. VALTREX [Concomitant]
     Indication: HERPES ZOSTER
  3. ZIAC [Concomitant]
     Indication: DRUG USE FOR UNKNOWN INDICATION
     Dosage: 25MG 5-6 DAILY
  4. VITAMIN D3 [Concomitant]
     Indication: DRUG USE FOR UNKNOWN INDICATION
  5. TRAMADOL HCL [Concomitant]
     Indication: ARTHRITIS
  6. SERTRALINE HCL [Concomitant]
     Indication: ARTHRITIS
  7. TRAVATAN [Concomitant]
     Indication: DRUG USE FOR UNKNOWN INDICATION
     Dosage: ONCE A NIGHT
  8. ADVIL [Concomitant]
     Indication: DRUG USE FOR UNKNOWN INDICATION
     Dosage: LIQUID GEL/ AT NIGHT BEFORE SIMCOR

REACTIONS (5)
  - ERYTHEMA [None]
  - FLUSHING [None]
  - HEADACHE [None]
  - PRURITUS [None]
  - SKIN BURNING SENSATION [None]
